FAERS Safety Report 4530215-3 (Version None)
Quarter: 2004Q4

REPORT INFORMATION
  Report Type: 
  Country: None (occurrence: None)
  Receive Date: 20041216
  Receipt Date: 20041216
  Transmission Date: 20050328
  Serious: Yes (Life-Threatening, Hospitalization, Disabling)
  Sender: FDA-Public Use
  Company Number: None

PATIENT
  Age: 45 Year
  Sex: Male
  Weight: 88.4514 kg

DRUGS (3)
  1. CYLERT [Suspect]
     Indication: ATTENTION DEFICIT/HYPERACTIVITY DISORDER
     Dosage: PRN
     Dates: start: 19950220, end: 20000415
  2. IMIPRAM TAB [Suspect]
     Dosage: PRN
  3. WELLBUTRIN [Suspect]
     Dosage: PRN

REACTIONS (17)
  - ABNORMAL BEHAVIOUR [None]
  - AGGRESSION [None]
  - ALCOHOL USE [None]
  - ANXIETY [None]
  - BEREAVEMENT REACTION [None]
  - DISTURBANCE IN SOCIAL BEHAVIOUR [None]
  - FEELING OF DESPAIR [None]
  - GRANDIOSITY [None]
  - INSOMNIA [None]
  - IRRITABILITY [None]
  - LOSS OF EMPLOYMENT [None]
  - MANIA [None]
  - MENTAL DISORDER [None]
  - PSYCHOMOTOR HYPERACTIVITY [None]
  - RELATIONSHIP BREAKDOWN [None]
  - STRESS SYMPTOMS [None]
  - SUICIDAL IDEATION [None]
